FAERS Safety Report 24539973 (Version 1)
Quarter: 2024Q4

REPORT INFORMATION
  Report Type: Spontaneous
  Country: PL (occurrence: PL)
  Receive Date: 20241023
  Receipt Date: 20241023
  Transmission Date: 20250115
  Serious: Yes (Other)
  Sender: SANDOZ
  Company Number: PL-002147023-PHHY2019PL118267

PATIENT
  Age: 37 Year
  Sex: Female

DRUGS (19)
  1. AZATHIOPRINE [Suspect]
     Active Substance: AZATHIOPRINE
     Indication: Autoimmune hepatitis
     Dosage: 50 MG, QD
     Route: 065
     Dates: start: 2012
  2. AZATHIOPRINE [Suspect]
     Active Substance: AZATHIOPRINE
     Indication: Hepatitis C
  3. BUDESONIDE [Interacting]
     Active Substance: BUDESONIDE
     Indication: Autoimmune hepatitis
     Dosage: 3 MG, QD
     Route: 065
  4. BUDESONIDE [Interacting]
     Active Substance: BUDESONIDE
     Indication: Immunosuppressant drug therapy
     Dosage: 9 MG, QD
     Route: 065
     Dates: start: 2012
  5. BUDESONIDE [Interacting]
     Active Substance: BUDESONIDE
     Dosage: REDUCTION IN GLUCOCORTICOID DOSE
     Route: 065
  6. DASABUVIR [Interacting]
     Active Substance: DASABUVIR
     Indication: Hepatitis C
     Dosage: 500 MG, QD (DIVIDED INTO 2 DOSES)
     Route: 065
  7. DASABUVIR [Interacting]
     Active Substance: DASABUVIR
     Indication: Autoimmune hepatitis
  8. DASABUVIR [Interacting]
     Active Substance: DASABUVIR
     Indication: Chronic hepatitis C
  9. DASABUVIR [Interacting]
     Active Substance: DASABUVIR
     Indication: Hepatitis C
  10. DASABUVIR [Interacting]
     Active Substance: DASABUVIR
     Indication: Hepatitis C virus test positive
  11. OMBITASVIR [Interacting]
     Active Substance: OMBITASVIR
     Indication: Hepatitis C
     Dosage: 25 MG, QD
     Route: 065
  12. OMBITASVIR [Interacting]
     Active Substance: OMBITASVIR
     Indication: Chronic hepatitis C
  13. OMBITASVIR [Interacting]
     Active Substance: OMBITASVIR
     Indication: Hepatitis C virus test positive
  14. PARITAPREVIR [Interacting]
     Active Substance: PARITAPREVIR
     Indication: Hepatitis C
     Dosage: 150 MG, QD
     Route: 065
  15. PARITAPREVIR [Interacting]
     Active Substance: PARITAPREVIR
     Indication: Chronic hepatitis C
  16. PARITAPREVIR [Interacting]
     Active Substance: PARITAPREVIR
     Indication: Hepatitis C virus test positive
  17. RITONAVIR [Interacting]
     Active Substance: RITONAVIR
     Indication: Hepatitis C
     Dosage: 100 MG, QD
     Route: 065
  18. RITONAVIR [Interacting]
     Active Substance: RITONAVIR
     Indication: Chronic hepatitis C
  19. RITONAVIR [Interacting]
     Active Substance: RITONAVIR
     Indication: Hepatitis C virus test positive

REACTIONS (3)
  - Cushing^s syndrome [Recovered/Resolved]
  - Drug interaction [Recovered/Resolved]
  - Off label use [Recovered/Resolved]
